FAERS Safety Report 24230255 (Version 1)
Quarter: 2024Q3

REPORT INFORMATION
  Report Type: Spontaneous
  Country: US (occurrence: US)
  Receive Date: 20240820
  Receipt Date: 20240820
  Transmission Date: 20241016
  Serious: No
  Sender: SANDOZ
  Company Number: US-SANDOZ-SDZ2024US058667

PATIENT
  Sex: Female

DRUGS (1)
  1. TRIFLURIDINE [Suspect]
     Active Substance: TRIFLURIDINE
     Indication: Product used for unknown indication
     Dosage: UNK
     Route: 065

REACTIONS (3)
  - Extra dose administered [Unknown]
  - Accidental exposure to product [Unknown]
  - Product leakage [Unknown]
